FAERS Safety Report 11213355 (Version 1)
Quarter: 2015Q2

REPORT INFORMATION
  Report Type: Spontaneous
  Country: GB (occurrence: GB)
  Receive Date: 20150623
  Receipt Date: 20150623
  Transmission Date: 20150821
  Serious: Yes (Disabling)
  Sender: FDA-Public Use
  Company Number: PHHY2015GB070728

PATIENT
  Age: 75 Year
  Sex: Female
  Weight: 60 kg

DRUGS (9)
  1. AMITRIPTYLINE HYDROCHLORIDE. [Concomitant]
     Active Substance: AMITRIPTYLINE HYDROCHLORIDE
     Indication: PRODUCT USED FOR UNKNOWN INDICATION
     Dosage: 1 UNK, QD, ONE OR TWO AT NIGHT
     Route: 065
     Dates: start: 20140313, end: 20150413
  2. DERMOL [Concomitant]
     Active Substance: BENZALKONIUM CHLORIDE\CHLORHEXIDINE HYDROCHLORIDE\ISOPROPYL MYRISTATE\PARAFFIN
     Indication: PRODUCT USED FOR UNKNOWN INDICATION
     Dosage: USE AS DIRECTED (WITH PUMP)
     Route: 065
     Dates: start: 20141219
  3. ASPIRIN. [Concomitant]
     Active Substance: ASPIRIN
     Indication: PRODUCT USED FOR UNKNOWN INDICATION
     Dosage: 1 DF, QD
     Route: 065
     Dates: start: 20131114
  4. IBUPROFEN. [Concomitant]
     Active Substance: IBUPROFEN
     Indication: ARTHRALGIA
     Dosage: TAKE ONE OR TWO AT NIGHT.
     Route: 065
     Dates: start: 20140828
  5. GABAPENTIN. [Suspect]
     Active Substance: GABAPENTIN
     Indication: PRODUCT USED FOR UNKNOWN INDICATION
     Route: 065
     Dates: start: 20150413
  6. LAXIDO                             /06401201/ [Concomitant]
     Active Substance: POLYETHYLENE GLYCOL 3350\POTASSIUM CHLORIDE\SODIUM BICARBONATE\SODIUM CHLORIDE
     Indication: PRODUCT USED FOR UNKNOWN INDICATION
     Dosage: 1 DF, UNK, ONE SACHET ONCE / TWICE DAILY AS REQUIRED, ORANGE
     Route: 065
     Dates: start: 20140710
  7. BECLOMETASONE [Concomitant]
     Active Substance: BECLOMETHASONE DIPROPIONATE
     Indication: PRODUCT USED FOR UNKNOWN INDICATION
     Dosage: 2 DF, BID, TWO PUFFS = 2DF
     Route: 055
     Dates: start: 20131114
  8. HYPROMELLOSE [Concomitant]
     Active Substance: HYPROMELLOSES
     Indication: PRODUCT USED FOR UNKNOWN INDICATION
     Dosage: 1-2 DROPS, THREE TIMES/DAY IF REQUIRED
     Route: 065
     Dates: start: 20131114
  9. PARACETAMOL [Concomitant]
     Active Substance: ACETAMINOPHEN
     Indication: PRODUCT USED FOR UNKNOWN INDICATION
     Dosage: TAKE ONE OR TWO FOUR TIMES/DAY IF REQUIRED
     Route: 065
     Dates: start: 20141219

REACTIONS (2)
  - Pain in extremity [Recovering/Resolving]
  - Blood creatine phosphokinase increased [Unknown]

NARRATIVE: CASE EVENT DATE: 20150529
